FAERS Safety Report 21672586 (Version 1)
Quarter: 2022Q4

REPORT INFORMATION
  Report Type: Report from Study
  Country: JP (occurrence: JP)
  Receive Date: 20221202
  Receipt Date: 20221202
  Transmission Date: 20230112
  Serious: Yes (Life-Threatening, Hospitalization, Other)
  Sender: FDA-Public Use
  Company Number: JP-TAKEDA-2022TJP078016

PATIENT
  Age: 3 Year
  Sex: Male

DRUGS (110)
  1. VELAGLUCERASE ALFA [Suspect]
     Active Substance: VELAGLUCERASE ALFA
     Indication: Gaucher^s disease type II
     Dosage: 1200 INTERNATIONAL UNIT
     Route: 042
     Dates: start: 20190418, end: 20200413
  2. VELAGLUCERASE ALFA [Suspect]
     Active Substance: VELAGLUCERASE ALFA
     Dosage: 1600 INTERNATIONAL UNIT
     Route: 042
     Dates: start: 20201113, end: 20220915
  3. PHENOBARBITAL [Concomitant]
     Active Substance: PHENOBARBITAL
     Dosage: 24 MILLILITER
     Route: 048
     Dates: end: 20190711
  4. PHENOBARBITAL [Concomitant]
     Active Substance: PHENOBARBITAL
     Dosage: 28 MILLILITER
     Route: 048
     Dates: start: 20190711, end: 20191016
  5. PHENOBARBITAL [Concomitant]
     Active Substance: PHENOBARBITAL
     Dosage: 26 MILLILITER
     Route: 048
     Dates: start: 20191016, end: 20201221
  6. FAMOTIDINE [Concomitant]
     Active Substance: FAMOTIDINE
     Dosage: 10 MILLIGRAM
     Route: 048
     Dates: end: 20201221
  7. FAMOTIDINE [Concomitant]
     Active Substance: FAMOTIDINE
     Dosage: 16 MILLIGRAM
     Route: 048
     Dates: start: 20210115
  8. FAMOTIDINE [Concomitant]
     Active Substance: FAMOTIDINE
     Dosage: 20 MILLIGRAM
     Route: 048
     Dates: start: 20201217, end: 20201219
  9. MOSAPRIDE CITRATE [Concomitant]
     Active Substance: MOSAPRIDE CITRATE
     Dosage: 5 MILLIGRAM
     Route: 048
     Dates: end: 20201221
  10. MIYA-BM [Concomitant]
     Active Substance: CLOSTRIDIUM BUTYRICUM SPORES STRAIN M-55
     Dosage: 1.5 GRAM
     Route: 048
     Dates: end: 20201221
  11. MIYA-BM [Concomitant]
     Active Substance: CLOSTRIDIUM BUTYRICUM SPORES STRAIN M-55
     Dosage: 2.1 GRAM
     Route: 048
     Dates: start: 20210102, end: 20210106
  12. MIYA-BM [Concomitant]
     Active Substance: CLOSTRIDIUM BUTYRICUM SPORES STRAIN M-55
     Dosage: 1.5 GRAM
     Route: 048
     Dates: start: 20210115, end: 20220331
  13. MIYA-BM [Concomitant]
     Active Substance: CLOSTRIDIUM BUTYRICUM SPORES STRAIN M-55
     Dosage: 2 GRAM
     Route: 048
     Dates: start: 20220331
  14. DANTRIUM [Concomitant]
     Active Substance: DANTROLENE SODIUM
     Dosage: 25 MILLIGRAM
     Route: 048
     Dates: end: 20190614
  15. DANTRIUM [Concomitant]
     Active Substance: DANTROLENE SODIUM
     Dosage: 37.5 MILLIGRAM
     Route: 048
     Dates: start: 20190614
  16. DANTRIUM [Concomitant]
     Active Substance: DANTROLENE SODIUM
     Dosage: 50 MILLIGRAM
     Route: 048
     Dates: end: 20201221
  17. DANTRIUM [Concomitant]
     Active Substance: DANTROLENE SODIUM
     Dosage: 50 MILLIGRAM
     Route: 048
     Dates: start: 20210103, end: 20210106
  18. DANTRIUM [Concomitant]
     Active Substance: DANTROLENE SODIUM
     Dosage: 50 MILLIGRAM
     Route: 048
     Dates: start: 20210113
  19. TIZANIDINE [Concomitant]
     Active Substance: TIZANIDINE
     Dosage: 7.5 MILLIGRAM
     Route: 048
     Dates: end: 20190711
  20. TIZANIDINE [Concomitant]
     Active Substance: TIZANIDINE
     Dosage: 10 MILLIGRAM
     Route: 048
     Dates: start: 20190711, end: 20190809
  21. TIZANIDINE [Concomitant]
     Active Substance: TIZANIDINE
     Dosage: 11 MILLIGRAM
     Route: 048
     Dates: start: 20190809
  22. TIZANIDINE [Concomitant]
     Active Substance: TIZANIDINE
     Dosage: 13 MILLIGRAM
     Route: 048
     Dates: end: 20201221
  23. DEPAKENE [Concomitant]
     Active Substance: VALPROIC ACID
     Dosage: 8 MILLILITER
     Route: 048
     Dates: end: 20190418
  24. DEPAKENE [Concomitant]
     Active Substance: VALPROIC ACID
     Dosage: 9 MILLILITER
     Route: 048
     Dates: start: 20190418, end: 20190614
  25. DEPAKENE [Concomitant]
     Active Substance: VALPROIC ACID
     Dosage: 10 MILLILITER
     Route: 048
     Dates: start: 20190614, end: 20191226
  26. DEPAKENE [Concomitant]
     Active Substance: VALPROIC ACID
     Dosage: 12 MILLILITER
     Route: 048
     Dates: start: 20191226
  27. DEPAKENE [Concomitant]
     Active Substance: VALPROIC ACID
     Dosage: 15 MILLILITER
     Route: 048
     Dates: end: 20201221
  28. DEPAKENE [Concomitant]
     Active Substance: VALPROIC ACID
     Dosage: 750 MILLIGRAM
     Route: 048
     Dates: start: 20210115, end: 20210720
  29. DEPAKENE [Concomitant]
     Active Substance: VALPROIC ACID
     Dosage: 750 MILLIGRAM
     Route: 048
     Dates: start: 20210819, end: 20220106
  30. DEPAKENE [Concomitant]
     Active Substance: VALPROIC ACID
     Dosage: 800 MILLIGRAM
     Route: 048
     Dates: start: 20220106
  31. LEVOCARNITINE [Concomitant]
     Active Substance: LEVOCARNITINE
     Dosage: 6 MILLILITER
     Route: 048
     Dates: end: 20201221
  32. LEVOCARNITINE [Concomitant]
     Active Substance: LEVOCARNITINE
     Dosage: 6 MILLILITER
     Route: 048
     Dates: start: 20210119
  33. LEVOCARNITINE [Concomitant]
     Active Substance: LEVOCARNITINE
     Dosage: 600 MILLIGRAM
     Route: 042
     Dates: start: 20201221, end: 20210119
  34. LEVOCARNITINE [Concomitant]
     Active Substance: LEVOCARNITINE
     Dosage: 600 MILLIGRAM
     Route: 042
     Dates: start: 20210126, end: 20210203
  35. CERCINE [Concomitant]
     Active Substance: DIAZEPAM
     Dosage: 15 MILLILITER
     Route: 048
     Dates: end: 20201221
  36. CERCINE [Concomitant]
     Active Substance: DIAZEPAM
     Dosage: 15 MILLILITER
     Route: 048
     Dates: start: 20210103, end: 20210106
  37. CERCINE [Concomitant]
     Active Substance: DIAZEPAM
     Dosage: 15 MILLIGRAM
     Route: 048
     Dates: start: 20210113, end: 20211209
  38. CERCINE [Concomitant]
     Active Substance: DIAZEPAM
     Dosage: 12 MILLIGRAM
     Route: 048
     Dates: start: 20211209
  39. LIORESAL [Concomitant]
     Active Substance: BACLOFEN
     Dosage: 5 MILLIGRAM
     Route: 048
  40. LIORESAL [Concomitant]
     Active Substance: BACLOFEN
     Dosage: 10 MILLIGRAM
     Route: 048
     Dates: end: 20201221
  41. LIORESAL [Concomitant]
     Active Substance: BACLOFEN
     Dosage: 10 MILLIGRAM
     Route: 048
     Dates: start: 20210103, end: 20210106
  42. LIORESAL [Concomitant]
     Active Substance: BACLOFEN
     Dosage: 10 MILLIGRAM
     Route: 048
     Dates: start: 20210113
  43. RIVOTRIL [Concomitant]
     Active Substance: CLONAZEPAM
     Dosage: 2 MILLIGRAM
     Route: 048
     Dates: end: 20190614
  44. RIVOTRIL [Concomitant]
     Active Substance: CLONAZEPAM
     Dosage: 3 MILLIGRAM
     Route: 048
     Dates: start: 20190614, end: 20200221
  45. RIVOTRIL [Concomitant]
     Active Substance: CLONAZEPAM
     Dosage: 4 MILLIGRAM
     Route: 048
     Dates: start: 20200221
  46. RIVOTRIL [Concomitant]
     Active Substance: CLONAZEPAM
     Dosage: 4.5 MILLIGRAM
     Route: 048
     Dates: start: 20210103, end: 20210106
  47. RIVOTRIL [Concomitant]
     Active Substance: CLONAZEPAM
     Dosage: 4.5 MILLIGRAM
     Route: 048
     Dates: start: 20210113, end: 20210114
  48. RIVOTRIL [Concomitant]
     Active Substance: CLONAZEPAM
     Dosage: 6 MILLIGRAM
     Route: 048
     Dates: start: 20210114, end: 20211111
  49. RIVOTRIL [Concomitant]
     Active Substance: CLONAZEPAM
     Dosage: 5 MILLIGRAM
     Route: 048
     Dates: start: 20211111, end: 20211209
  50. RIVOTRIL [Concomitant]
     Active Substance: CLONAZEPAM
     Dosage: 4 MILLIGRAM
     Route: 048
     Dates: start: 20211209
  51. BIFIDOBACTERIUM SPP. [Concomitant]
     Active Substance: BIFIDOBACTERIUM SPP.
     Dosage: 1.5 GRAM
     Route: 048
     Dates: end: 20201221
  52. BIFIDOBACTERIUM SPP. [Concomitant]
     Active Substance: BIFIDOBACTERIUM SPP.
     Dosage: 1.5 GRAM
     Route: 048
     Dates: start: 20210115, end: 20220331
  53. BIFIDOBACTERIUM SPP. [Concomitant]
     Active Substance: BIFIDOBACTERIUM SPP.
     Dosage: 2 GRAM
     Route: 048
     Dates: start: 20220331, end: 20220915
  54. CARBOCYSTEINE [Concomitant]
     Active Substance: CARBOCYSTEINE
     Dosage: 450 MILLIGRAM
     Route: 048
  55. CARBOCYSTEINE [Concomitant]
     Active Substance: CARBOCYSTEINE
     Dosage: 600 MILLIGRAM
     Route: 048
     Dates: end: 20201221
  56. LEVETIRACETAM [Concomitant]
     Active Substance: LEVETIRACETAM
     Dosage: 900 MILLIGRAM
     Route: 048
     Dates: end: 20191226
  57. LEVETIRACETAM [Concomitant]
     Active Substance: LEVETIRACETAM
     Dosage: 1000 MILLIGRAM
     Route: 048
     Dates: start: 20191226, end: 20200221
  58. LEVETIRACETAM [Concomitant]
     Active Substance: LEVETIRACETAM
     Dosage: 1200 MILLIGRAM
     Route: 048
     Dates: start: 20200221
  59. LEVETIRACETAM [Concomitant]
     Active Substance: LEVETIRACETAM
     Dosage: 1400 MILLIGRAM
     Route: 048
     Dates: end: 20201221
  60. LEVETIRACETAM [Concomitant]
     Active Substance: LEVETIRACETAM
     Dosage: 1400 MILLIGRAM
     Route: 048
     Dates: start: 20210119
  61. LEVETIRACETAM [Concomitant]
     Active Substance: LEVETIRACETAM
     Dosage: 1400 MILLIGRAM
     Route: 042
     Dates: start: 20201221, end: 20210119
  62. LEVETIRACETAM [Concomitant]
     Active Substance: LEVETIRACETAM
     Dosage: 1400 MILLIGRAM
     Route: 042
     Dates: start: 20210125, end: 20210203
  63. ROZEREM [Concomitant]
     Active Substance: RAMELTEON
     Dosage: 1 MILLIGRAM
     Route: 048
     Dates: end: 20190614
  64. ROZEREM [Concomitant]
     Active Substance: RAMELTEON
     Dosage: 2 MILLIGRAM
     Route: 048
     Dates: start: 20190614, end: 20190809
  65. ROZEREM [Concomitant]
     Active Substance: RAMELTEON
     Dosage: 3 MILLIGRAM
     Route: 048
     Dates: start: 20190809, end: 20201220
  66. FYCOMPA [Concomitant]
     Active Substance: PERAMPANEL
     Dosage: 5 MILLIGRAM
     Route: 048
     Dates: end: 20200129
  67. FYCOMPA [Concomitant]
     Active Substance: PERAMPANEL
     Dosage: 6 MILLIGRAM
     Route: 048
     Dates: start: 20200129
  68. FYCOMPA [Concomitant]
     Active Substance: PERAMPANEL
     Dosage: 8 MILLIGRAM
     Route: 048
     Dates: end: 20201220
  69. FYCOMPA [Concomitant]
     Active Substance: PERAMPANEL
     Dosage: 4 MILLIGRAM
     Route: 048
     Dates: start: 20210101, end: 20210103
  70. FYCOMPA [Concomitant]
     Active Substance: PERAMPANEL
     Dosage: 8 MILLIGRAM
     Route: 048
     Dates: start: 20210103
  71. FUROSEMIDE [Concomitant]
     Active Substance: FUROSEMIDE
     Dosage: 15 MILLIGRAM
     Route: 048
     Dates: end: 20200410
  72. FUROSEMIDE [Concomitant]
     Active Substance: FUROSEMIDE
     Dosage: 10 MILLIGRAM
     Route: 048
     Dates: start: 20200410, end: 20200413
  73. FUROSEMIDE [Concomitant]
     Active Substance: FUROSEMIDE
     Dosage: 5 MILLIGRAM
     Route: 048
     Dates: start: 20200414
  74. SPIRONOLACTONE [Concomitant]
     Active Substance: SPIRONOLACTONE
     Dosage: 75 MILLIGRAM
     Route: 048
     Dates: end: 20200221
  75. SPIRONOLACTONE [Concomitant]
     Active Substance: SPIRONOLACTONE
     Dosage: 50 MILLIGRAM
     Route: 048
     Dates: start: 20200221, end: 20200319
  76. SPIRONOLACTONE [Concomitant]
     Active Substance: SPIRONOLACTONE
     Dosage: 30 MILLIGRAM
     Route: 048
     Dates: start: 20200319, end: 20200402
  77. SPIRONOLACTONE [Concomitant]
     Active Substance: SPIRONOLACTONE
     Dosage: 15 MILLIGRAM
     Route: 048
     Dates: start: 20200402, end: 20200410
  78. SPIRONOLACTONE [Concomitant]
     Active Substance: SPIRONOLACTONE
     Dosage: 10 MILLIGRAM
     Route: 048
     Dates: start: 20200410, end: 20200413
  79. SPIRONOLACTONE [Concomitant]
     Active Substance: SPIRONOLACTONE
     Dosage: 5 MILLIGRAM
     Route: 048
     Dates: start: 20200414
  80. SPIRONOLACTONE [Concomitant]
     Active Substance: SPIRONOLACTONE
     Dosage: UNK
  81. TRICLOFOS SODIUM [Concomitant]
     Active Substance: TRICLOFOS SODIUM
     Dosage: 10 MILLILITER
     Route: 048
     Dates: end: 20201220
  82. HAINOSANKYUTO [Concomitant]
     Dosage: 5.4 GRAM
     Route: 048
     Dates: end: 20190521
  83. HERBALS\MINERALS\VITAMINS [Concomitant]
     Active Substance: HERBALS\MINERALS\VITAMINS
     Dosage: 12 MILLILITER
     Route: 048
     Dates: start: 20190711, end: 20190809
  84. HERBALS\MINERALS\VITAMINS [Concomitant]
     Active Substance: HERBALS\MINERALS\VITAMINS
     Dosage: 15 MILLILITER
     Route: 048
     Dates: start: 20190809
  85. HERBALS\MINERALS\VITAMINS [Concomitant]
     Active Substance: HERBALS\MINERALS\VITAMINS
     Dosage: 18 MILLILITER
     Route: 048
     Dates: end: 20201220
  86. HERBALS\MINERALS\VITAMINS [Concomitant]
     Active Substance: HERBALS\MINERALS\VITAMINS
     Dosage: 4 MILLILITER
     Route: 048
     Dates: start: 20210101, end: 20210103
  87. HERBALS\MINERALS\VITAMINS [Concomitant]
     Active Substance: HERBALS\MINERALS\VITAMINS
     Dosage: 18 MILLILITER
     Route: 048
     Dates: start: 20210103, end: 20210106
  88. HERBALS\MINERALS\VITAMINS [Concomitant]
     Active Substance: HERBALS\MINERALS\VITAMINS
     Dosage: 18 MILLILITER
     Route: 048
     Dates: start: 20210128, end: 20211209
  89. HERBALS\MINERALS\VITAMINS [Concomitant]
     Active Substance: HERBALS\MINERALS\VITAMINS
     Dosage: 15 MILLILITER
     Route: 048
     Dates: start: 20211209
  90. AMOXICILLIN\CLAVULANATE POTASSIUM [Concomitant]
     Active Substance: AMOXICILLIN\CLAVULANATE POTASSIUM
     Dosage: 3.03 GRAM
     Route: 048
     Dates: start: 20191008, end: 20191012
  91. CEFMETAZOLE [Concomitant]
     Active Substance: CEFMETAZOLE
     Dosage: 1800 MILLIGRAM
     Route: 042
     Dates: start: 20191007, end: 20191008
  92. CEFMETAZOLE [Concomitant]
     Active Substance: CEFMETAZOLE
     Dosage: 1500 MILLIGRAM
     Route: 042
     Dates: start: 20200124, end: 20200125
  93. PHENOBARBITAL [Concomitant]
     Active Substance: PHENOBARBITAL
     Dosage: 160 MILLIGRAM
     Route: 048
     Dates: start: 20210119, end: 20210401
  94. PHENOBARBITAL [Concomitant]
     Active Substance: PHENOBARBITAL
     Dosage: 140 MILLIGRAM
     Route: 048
     Dates: start: 20210401, end: 20210430
  95. PHENOBARBITAL [Concomitant]
     Active Substance: PHENOBARBITAL
     Dosage: 140 MILLIGRAM
     Route: 048
     Dates: start: 20210430
  96. TIZANIDINE [Concomitant]
     Active Substance: TIZANIDINE
     Dosage: 2 MILLIGRAM
     Route: 048
     Dates: start: 20210101, end: 20210103
  97. TIZANIDINE [Concomitant]
     Active Substance: TIZANIDINE
     Dosage: 8 MILLIGRAM
     Route: 048
     Dates: start: 20210103, end: 20210106
  98. TIZANIDINE [Concomitant]
     Active Substance: TIZANIDINE
     Dosage: 8 MILLIGRAM
     Route: 048
     Dates: start: 20210113, end: 20210128
  99. TIZANIDINE [Concomitant]
     Active Substance: TIZANIDINE
     Dosage: 12 MILLIGRAM
     Route: 048
     Dates: start: 20210128, end: 20211209
  100. TIZANIDINE [Concomitant]
     Active Substance: TIZANIDINE
     Dosage: 10 MILLIGRAM
     Route: 048
     Dates: start: 20211209
  101. PHENOBARBITAL SODIUM [Concomitant]
     Active Substance: PHENOBARBITAL SODIUM
     Dosage: 200 MILLIGRAM
     Route: 042
     Dates: start: 20201222, end: 20201222
  102. PHENOBARBITAL SODIUM [Concomitant]
     Active Substance: PHENOBARBITAL SODIUM
     Dosage: 300 MILLIGRAM
     Route: 042
     Dates: start: 20201223, end: 20201223
  103. PHENOBARBITAL SODIUM [Concomitant]
     Active Substance: PHENOBARBITAL SODIUM
     Dosage: 400 MILLIGRAM
     Route: 042
     Dates: start: 20201224, end: 20201224
  104. PHENOBARBITAL SODIUM [Concomitant]
     Active Substance: PHENOBARBITAL SODIUM
     Dosage: 200 MILLIGRAM
     Route: 042
     Dates: start: 20201225, end: 20201225
  105. PHENOBARBITAL SODIUM [Concomitant]
     Active Substance: PHENOBARBITAL SODIUM
     Dosage: 200 MILLIGRAM
     Route: 042
     Dates: start: 20201227, end: 20201227
  106. PHENOBARBITAL SODIUM [Concomitant]
     Active Substance: PHENOBARBITAL SODIUM
     Dosage: 150 MILLIGRAM
     Route: 042
     Dates: start: 20201229, end: 20210102
  107. PHENOBARBITAL SODIUM [Concomitant]
     Active Substance: PHENOBARBITAL SODIUM
     Dosage: 160 MILLIGRAM
     Route: 042
     Dates: start: 20210103, end: 20210119
  108. PHENOBARBITAL SODIUM [Concomitant]
     Active Substance: PHENOBARBITAL SODIUM
     Dosage: 160 MILLIGRAM
     Route: 042
     Dates: start: 20210125, end: 20210203
  109. CEFAZOLIN SODIUM [Concomitant]
     Active Substance: CEFAZOLIN SODIUM
     Dosage: 2250 MILLIGRAM
     Route: 042
     Dates: start: 20201218, end: 20201218
  110. VALPROATE SODIUM [Concomitant]
     Active Substance: VALPROATE SODIUM
     Dosage: 750 MILLIGRAM
     Route: 048
     Dates: start: 20210720, end: 20210819

REACTIONS (9)
  - Peritonitis [Recovered/Resolved with Sequelae]
  - Colitis ischaemic [Recovered/Resolved with Sequelae]
  - Gastroenteritis eosinophilic [Recovering/Resolving]
  - Cytomegalovirus infection [Recovered/Resolved]
  - Urinary tract infection [Recovered/Resolved]
  - Urinary tract infection [Recovered/Resolved]
  - Otitis media acute [Recovered/Resolved]
  - Selenium deficiency [Recovering/Resolving]
  - Zinc deficiency [Recovering/Resolving]

NARRATIVE: CASE EVENT DATE: 20191001
